FAERS Safety Report 5780336-2 (Version None)
Quarter: 2008Q2

REPORT INFORMATION
  Report Type: 
  Country: None (occurrence: None)
  Receive Date: 20080620
  Receipt Date: 20080617
  Transmission Date: 20081010
  Serious: Yes (Other)
  Sender: FDA-Public Use
  Company Number: B0359655A

PATIENT
  Sex: Female

DRUGS (16)
  1. SEROXAT [Suspect]
     Indication: OBSESSIVE-COMPULSIVE DISORDER
     Route: 065
     Dates: start: 19970111
  2. DIAZEPAM [Concomitant]
     Dates: start: 19840328
  3. DOMPERIDONE [Concomitant]
  4. OMEPRAZOLE [Concomitant]
  5. MEBEVERINE [Concomitant]
  6. ZOPLICONE [Concomitant]
  7. CINNARIZINE [Concomitant]
  8. ADALAT [Concomitant]
     Indication: HYPERTENSION
     Dates: start: 20070701
  9. SIMVASTATIN [Concomitant]
     Dates: start: 20070301
  10. TRAZODONE HCL [Concomitant]
     Dosage: 100MG AT NIGHT
     Dates: end: 19970111
  11. COLOFAC [Concomitant]
  12. ACETAMINOPHEN W/ CODEINE [Concomitant]
  13. GAVISCON [Concomitant]
  14. FERROUS SULFATE TAB [Concomitant]
  15. BENDROFLUMETHIAZIDE [Concomitant]
  16. INHALER [Concomitant]

REACTIONS (23)
  - AGORAPHOBIA [None]
  - BIPOLAR I DISORDER [None]
  - DEPRESSED MOOD [None]
  - DIARRHOEA [None]
  - DISSOCIATION [None]
  - DRUG DEPENDENCE [None]
  - DRUG WITHDRAWAL SYNDROME [None]
  - EMOTIONAL DISORDER [None]
  - FATIGUE [None]
  - HEADACHE [None]
  - INSOMNIA [None]
  - INTENTIONAL SELF-INJURY [None]
  - MIGRAINE [None]
  - MOOD SWINGS [None]
  - NEGATIVE THOUGHTS [None]
  - NIGHTMARE [None]
  - PERFORMANCE STATUS DECREASED [None]
  - PERSONALITY DISORDER [None]
  - SUICIDAL IDEATION [None]
  - SUICIDE ATTEMPT [None]
  - TENSION [None]
  - VISION BLURRED [None]
  - WEIGHT INCREASED [None]
